FAERS Safety Report 5828750-0 (Version None)
Quarter: 2008Q3

REPORT INFORMATION
  Report Type: 
  Country: None (occurrence: None)
  Receive Date: 20080729
  Receipt Date: 20080729
  Transmission Date: 20090109
  Serious: No
  Sender: FDA-Public Use
  Company Number: None

PATIENT
  Sex: Female
  Weight: 68.0396 kg

DRUGS (1)
  1. BONIVA [Suspect]
     Indication: OSTEOPOROSIS
     Dosage: 3MG Q 3 MONTHS IV
     Route: 042
     Dates: start: 20080415, end: 20080715

REACTIONS (3)
  - ERYTHEMA [None]
  - OEDEMA [None]
  - PRURITUS [None]
